FAERS Safety Report 7027103-X (Version None)
Quarter: 2010Q4

REPORT INFORMATION
  Report Type: 
  Country: None (occurrence: None)
  Receive Date: 20101004
  Receipt Date: 20100922
  Transmission Date: 20110411
  Serious: Yes (Hospitalization)
  Sender: FDA-Public Use
  Company Number: NL-MEDIMMUNE-MEDI-0011567

PATIENT
  Sex: Female
  Weight: 3.8 kg

DRUGS (1)
  1. SYNAGIS [Suspect]
     Route: 051
     Dates: start: 20100907, end: 20100907

REACTIONS (4)
  - ABDOMINAL PAIN [None]
  - DIARRHOEA [None]
  - GASTROINTESTINAL PAIN [None]
  - HYPERPHAGIA [None]
